FAERS Safety Report 7750388-9 (Version None)
Quarter: 2011Q3

REPORT INFORMATION
  Report Type: 
  Country: None (occurrence: None)
  Receive Date: 20110914
  Receipt Date: 20110905
  Transmission Date: 20111222
  Serious: Yes (Other)
  Sender: FDA-Public Use
  Company Number: IE-ABBOTT-11P-229-0851359-00

PATIENT
  Age: 76 Year
  Sex: Female

DRUGS (4)
  1. ZOLPIDEM TARTRATE TEVA [Concomitant]
     Indication: PRODUCT USED FOR UNKNOWN INDICATION
     Dosage: NOCTE
     Route: 048
  2. LATANOPROST [Concomitant]
     Indication: PRODUCT USED FOR UNKNOWN INDICATION
     Route: 047
  3. ATORVASTATIN [Concomitant]
     Indication: PRODUCT USED FOR UNKNOWN INDICATION
     Dosage: NOCTE
     Route: 048
  4. CLARITHROMYCIN [Suspect]
     Indication: INFECTION
     Dosage: 1 IN 2 DAYS, 4 DOSES IN TOTAL
     Route: 048
     Dates: start: 20110809, end: 20110811

REACTIONS (4)
  - DIARRHOEA [None]
  - DRY MOUTH [None]
  - ABNORMAL DREAMS [None]
  - HYPERHIDROSIS [None]
